FAERS Safety Report 9652077 (Version 2)
Quarter: 2013Q4

REPORT INFORMATION
  Report Type: Spontaneous
  Country: CL (occurrence: CL)
  Receive Date: 20131029
  Receipt Date: 20131101
  Transmission Date: 20140711
  Serious: Yes (Other)
  Sender: FDA-Public Use
  Company Number: CL-PFIZER INC-2013304450

PATIENT
  Age: 79 Year
  Sex: Female

DRUGS (4)
  1. XALATAN [Suspect]
     Indication: GLAUCOMA
     Dosage: 1 DF, 1X/DAY
     Route: 047
     Dates: start: 2007
  2. ASPIRINA [Concomitant]
  3. LOSARTAN [Concomitant]
  4. PROPRANOLOL [Concomitant]

REACTIONS (2)
  - Hypoacusis [Not Recovered/Not Resolved]
  - Ear pain [Recovered/Resolved]
